FAERS Safety Report 6113713-0 (Version None)
Quarter: 2009Q1

REPORT INFORMATION
  Report Type: 
  Country: None (occurrence: None)
  Receive Date: 20090312
  Receipt Date: 20090309
  Transmission Date: 20090719
  Serious: Yes (Other)
  Sender: FDA-Public Use
  Company Number: US-ELI_LILLY_AND_COMPANY-US200812000715

PATIENT
  Sex: Female
  Weight: 73.469 kg

DRUGS (9)
  1. FORTEO [Suspect]
     Indication: OSTEOPOROSIS
     Dosage: UNK, UNK
     Dates: start: 20060101, end: 20080101
  2. TRAMADOL HCL [Concomitant]
     Indication: PAIN
  3. VICODIN [Concomitant]
  4. SULAR [Concomitant]
     Indication: HYPERTENSION
     Dosage: 20 MG, UNK
  5. METHOCARBAMOL [Concomitant]
  6. CALCIUM [Concomitant]
  7. ZYRTEC [Concomitant]
  8. ALBUTEROL [Concomitant]
     Indication: ASTHMA
  9. ADVAIR HFA [Concomitant]

REACTIONS (5)
  - FOOT FRACTURE [None]
  - INTERVERTEBRAL DISC DISORDER [None]
  - NECK PAIN [None]
  - PAIN IN EXTREMITY [None]
  - SPINAL COMPRESSION FRACTURE [None]
